FAERS Safety Report 23353925 (Version 1)
Quarter: 2024Q1

REPORT INFORMATION
  Report Type: Spontaneous
  Country: KR (occurrence: KR)
  Receive Date: 20240101
  Receipt Date: 20240101
  Transmission Date: 20240410
  Serious: Yes (Death, Life-Threatening, Hospitalization, Other)
  Sender: FDA-Public Use
  Company Number: KR-BoehringerIngelheim-2023-BI-280380

PATIENT
  Age: 59 Year
  Sex: Male

DRUGS (2)
  1. AFATINIB [Suspect]
     Active Substance: AFATINIB
     Indication: Lung adenocarcinoma stage IV
     Dosage: DAILY DOSE: 40 MILLIGRAM(S)
  2. AFATINIB [Suspect]
     Active Substance: AFATINIB
     Indication: EGFR gene mutation

REACTIONS (5)
  - Death [Fatal]
  - Tumour lysis syndrome [Unknown]
  - Acute kidney injury [Unknown]
  - Malignant neoplasm progression [Unknown]
  - Dyspnoea [Unknown]
